FAERS Safety Report 5794784-8 (Version None)
Quarter: 2008Q2

REPORT INFORMATION
  Report Type: 
  Country: None (occurrence: None)
  Receive Date: 20080630
  Receipt Date: 20080624
  Transmission Date: 20081010
  Serious: Yes (Other)
  Sender: FDA-Public Use
  Company Number: A0644683A

PATIENT
  Age: 48 Year
  Sex: Female
  Weight: 65 kg

DRUGS (2)
  1. LAPATINIB [Suspect]
     Dosage: 1500MG PER DAY
     Route: 048
     Dates: start: 20060714, end: 20070525
  2. AUGMENTIN '125' [Concomitant]
     Indication: SKIN INFECTION
     Dosage: 875MG TWICE PER DAY
     Route: 048
     Dates: start: 20070108, end: 20070117

REACTIONS (2)
  - HEPATIC ENZYME INCREASED [None]
  - TRANSAMINASES INCREASED [None]
